FAERS Safety Report 15365220 (Version 2)
Quarter: 2020Q3

REPORT INFORMATION
  Report Type: Spontaneous
  Country: CN (occurrence: CN)
  Receive Date: 20180910
  Receipt Date: 20180927
  Transmission Date: 20201105
  Serious: No
  Sender: FDA-Public Use
  Company Number: CN-009507513-1809CHN002379

PATIENT
  Age: 69 Year
  Sex: Male

DRUGS (9)
  1. PREDNISONE. [Concomitant]
     Active Substance: PREDNISONE
     Indication: GOUT
     Dosage: 5 MG, QD
     Route: 048
  2. INSULIN [Concomitant]
     Active Substance: INSULIN NOS
     Indication: BLOOD GLUCOSE INCREASED
     Dosage: UNK
     Dates: start: 2017
  3. AMIKACIN. [Suspect]
     Active Substance: AMIKACIN
     Indication: PNEUMONIA
     Dosage: UNK
     Dates: start: 201707
  4. PREDNISONE. [Concomitant]
     Active Substance: PREDNISONE
     Indication: RHEUMATOID ARTHRITIS
     Dosage: 10 MG, QD
  5. IMIPENEM AND CILASTATIN [Suspect]
     Active Substance: CILASTATIN SODIUM\IMIPENEM
     Indication: PNEUMONIA
     Dosage: 1 G, EVERY 6 HOURS (Q6H)
     Route: 041
     Dates: start: 201707
  6. PIPERACILLIN AND TAZOBACTAM [Suspect]
     Active Substance: PIPERACILLIN SODIUM\TAZOBACTAM SODIUM
     Indication: PNEUMONIA
     Dosage: UNK
     Dates: start: 201707
  7. AMIKACIN. [Suspect]
     Active Substance: AMIKACIN
     Indication: ANTI-INFECTIVE THERAPY
  8. ULINASTATIN [Concomitant]
     Active Substance: ULINASTATIN
     Dosage: UNK
     Dates: start: 201707
  9. PIPERACILLIN AND TAZOBACTAM [Suspect]
     Active Substance: PIPERACILLIN SODIUM\TAZOBACTAM SODIUM
     Indication: ANTI-INFECTIVE THERAPY

REACTIONS (1)
  - Product use in unapproved indication [Unknown]

NARRATIVE: CASE EVENT DATE: 201707
